FAERS Safety Report 16091087 (Version 1)
Quarter: 2019Q1

REPORT INFORMATION
  Report Type: Spontaneous
  Country: US (occurrence: US)
  Receive Date: 20190319
  Receipt Date: 20190319
  Transmission Date: 20190418
  Serious: No
  Sender: FDA-Public Use
  Company Number: US-009507513-1903USA005341

PATIENT
  Age: 22 Year
  Sex: Female
  Weight: 120.18 kg

DRUGS (1)
  1. NEXPLANON [Suspect]
     Active Substance: ETONOGESTREL
     Dosage: 1 DOSAGE FORM(1 ROD EVERY 3 YEARS)
     Route: 059
     Dates: start: 20170531

REACTIONS (2)
  - Complication associated with device [Unknown]
  - Device deployment issue [Unknown]
